FAERS Safety Report 6957877-5 (Version None)
Quarter: 2010Q3

REPORT INFORMATION
  Report Type: 
  Country: None (occurrence: None)
  Receive Date: 20100827
  Receipt Date: 20100827
  Transmission Date: 20110219
  Serious: Yes (Life-Threatening, Hospitalization, Disabling, Other)
  Sender: FDA-Public Use
  Company Number: None

PATIENT
  Sex: Male
  Weight: 73.9363 kg

DRUGS (5)
  1. HUMIRA [Suspect]
     Indication: RHEUMATOID ARTHRITIS
     Dosage: 40 MG Q2 WEEKS IM
     Route: 030
     Dates: start: 20080101, end: 20100101
  2. METHOTREXATE [Suspect]
     Dosage: 2.5 MG TAB TABS 6 ONCE A WEEK ORAL
     Route: 048
  3. THYROID MED [Concomitant]
  4. FOLIC ACID [Concomitant]
  5. TRAVATAN [Concomitant]

REACTIONS (2)
  - FATIGUE [None]
  - NECROTISING FASCIITIS [None]
